FAERS Safety Report 4411699-8 (Version None)
Quarter: 2004Q3

REPORT INFORMATION
  Report Type: 
  Country: None (occurrence: None)
  Receive Date: 20040730
  Receipt Date: 20040426
  Transmission Date: 20050211
  Serious: Yes (Hospitalization, Other)
  Sender: FDA-Public Use
  Company Number: US-AMGEN-US074044

PATIENT
  Sex: Female
  Weight: 22.7 kg

DRUGS (6)
  1. ENBREL [Suspect]
     Indication: JUVENILE ARTHRITIS
     Route: 058
     Dates: start: 20040220, end: 20040419
  2. METHOTREXATE [Concomitant]
     Route: 048
     Dates: start: 20020326, end: 20040401
  3. VIOXX [Concomitant]
     Route: 048
     Dates: start: 20011101
  4. ALBUTEROL [Concomitant]
  5. ZYRTEC [Concomitant]
     Route: 048
  6. PREDNISOLONE [Concomitant]
     Dates: start: 20010601

REACTIONS (4)
  - BENIGN INTRACRANIAL HYPERTENSION [None]
  - OPTIC NERVE INJURY [None]
  - OPTIC NEURITIS [None]
  - PAPILLOEDEMA [None]
